FAERS Safety Report 5357747-2 (Version None)
Quarter: 2007Q2

REPORT INFORMATION
  Report Type: 
  Country: None (occurrence: None)
  Receive Date: 20070614
  Receipt Date: 20070604
  Transmission Date: 20071010
  Serious: Yes (Disabling)
  Sender: FDA-Public Use
  Company Number: US-SANOFI-SYNTHELABO-A03200703267

PATIENT
  Sex: Male
  Weight: 63.5 kg

DRUGS (2)
  1. LEVAQUIN [Concomitant]
     Dosage: UNK
     Route: 048
     Dates: start: 20070503, end: 20070513
  2. UROXATRAL [Suspect]
     Indication: PROSTATITIS
     Route: 048
     Dates: start: 20070503, end: 20070508

REACTIONS (3)
  - HYPERSENSITIVITY [None]
  - MYOPATHY [None]
  - PAIN IN EXTREMITY [None]
